FAERS Safety Report 24275777 (Version 1)
Quarter: 2024Q3

REPORT INFORMATION
  Report Type: Spontaneous
  Country: IN (occurrence: IN)
  Receive Date: 20240903
  Receipt Date: 20240903
  Transmission Date: 20241016
  Serious: Yes (Other)
  Sender: EPIC PHARM
  Company Number: IN-EPICPHARMA-IN-2024EPCLIT01038

PATIENT
  Age: 56 Year
  Sex: Male

DRUGS (4)
  1. TRIAMCINOLONE ACETONIDE [Suspect]
     Active Substance: TRIAMCINOLONE ACETONIDE
     Indication: Product used for unknown indication
     Route: 035
  2. VANCOMYCIN [Concomitant]
     Active Substance: VANCOMYCIN
     Route: 035
  3. CEFTAZIDIME [Concomitant]
     Active Substance: CEFTAZIDIME
     Route: 065
  4. BEVACIZUMAB [Concomitant]
     Active Substance: BEVACIZUMAB
     Route: 035

REACTIONS (2)
  - Pseudoendophthalmitis [Unknown]
  - Product use issue [Unknown]
